FAERS Safety Report 18566062 (Version 1)
Quarter: 2020Q4

REPORT INFORMATION
  Report Type: Not Available
  Country: None (occurrence: None)
  Receive Date: 20201201
  Receipt Date: 20201201
  Transmission Date: 20210114
  Serious: Yes (Other)
  Sender: FDA-Public Use
  Company Number: US-AKORN-157137

PATIENT
  Age: 35 Year
  Sex: Male
  Weight: 58 kg

DRUGS (1)
  1. BENZTROPINE MESYLATE INJECTION [Suspect]
     Active Substance: BENZTROPINE MESYLATE

REACTIONS (6)
  - Drug dependence [Unknown]
  - Asthma [Unknown]
  - Hepatotoxicity [Unknown]
  - Poisoning [Unknown]
  - Weight increased [Unknown]
  - Diabetes mellitus [Unknown]
